FAERS Safety Report 24109249 (Version 1)
Quarter: 2024Q3

REPORT INFORMATION
  Report Type: Spontaneous
  Country: US (occurrence: US)
  Receive Date: 20240718
  Receipt Date: 20240718
  Transmission Date: 20241017
  Serious: Yes (Other)
  Sender: ACCORD
  Company Number: US-MLMSERVICE-20240702-PI116730-00218-1

PATIENT
  Age: 69 Year
  Sex: Female

DRUGS (20)
  1. METHOTREXATE [Suspect]
     Active Substance: METHOTREXATE
     Indication: Diffuse large B-cell lymphoma stage III
     Dosage: LAST CHEMOTHERAPY WAS 4 ROUNDS
     Route: 037
  2. ETOPOSIDE [Concomitant]
     Active Substance: ETOPOSIDE
     Indication: Invasive ductal breast carcinoma
     Dosage: FIRST REGIMEN WAS 2 ROUNDS OF DOSE-ADJUSTED
  3. RITUXIMAB [Concomitant]
     Active Substance: RITUXIMAB
     Indication: Invasive ductal breast carcinoma
     Dosage: FIRST REGIMEN WAS 2 ROUNDS OF DOSE-ADJUSTED
  4. VINCRISTINE [Concomitant]
     Active Substance: VINCRISTINE
     Indication: Diffuse large B-cell lymphoma stage III
     Dosage: FIRST REGIMEN WAS 2 ROUNDS OF DOSE-ADJUSTED
     Dates: end: 2019
  5. DOXORUBICIN [Concomitant]
     Active Substance: DOXORUBICIN
     Indication: Diffuse large B-cell lymphoma stage III
     Dosage: FIRST REGIMEN WAS 2 ROUNDS OF DOSE-ADJUSTED
  6. CYCLOPHOSPHAMIDE [Concomitant]
     Active Substance: CYCLOPHOSPHAMIDE
     Indication: Diffuse large B-cell lymphoma stage III
     Dosage: FIRST REGIMEN WAS 2 ROUNDS OF DOSE-ADJUSTED
  7. PREDNISONE [Concomitant]
     Active Substance: PREDNISONE
     Indication: Diffuse large B-cell lymphoma stage III
     Dosage: FIRST REGIMEN WAS 2 ROUNDS OF DOSE-ADJUSTED
  8. PREDNISONE [Concomitant]
     Active Substance: PREDNISONE
     Indication: Diffuse large B-cell lymphoma stage III
     Dosage: LAST CHEMOTHERAPY WAS 4 ROUNDS
     Dates: end: 201911
  9. PREDNISONE [Concomitant]
     Active Substance: PREDNISONE
     Indication: Invasive ductal breast carcinoma
     Dosage: FIRST REGIMEN WAS 2 ROUNDS OF DOSE-ADJUSTED
  10. ETOPOSIDE [Concomitant]
     Active Substance: ETOPOSIDE
     Indication: Diffuse large B-cell lymphoma stage III
     Dosage: FIRST REGIMEN WAS 2 ROUNDS OF DOSE-ADJUSTED
  11. RITUXIMAB [Concomitant]
     Active Substance: RITUXIMAB
     Indication: Invasive ductal breast carcinoma
     Dosage: LAST CHEMOTHERAPY WAS 4 ROUNDS
     Dates: end: 201911
  12. RITUXIMAB [Concomitant]
     Active Substance: RITUXIMAB
     Indication: Diffuse large B-cell lymphoma stage III
     Dosage: FIRST REGIMEN WAS 2 ROUNDS OF DOSE-ADJUSTED
  13. VINCRISTINE [Concomitant]
     Active Substance: VINCRISTINE
     Indication: Diffuse large B-cell lymphoma stage III
     Dosage: LAST CHEMOTHERAPY WAS 4 ROUNDS BUT VINCRISTINE WAS DROPPED AFTER THE FIRST SESSION DUE TO NEUROPATHY
     Dates: end: 2019
  14. VINCRISTINE [Concomitant]
     Active Substance: VINCRISTINE
     Indication: Invasive ductal breast carcinoma
     Dosage: FIRST REGIMEN WAS 2 ROUNDS OF DOSE-ADJUSTED
     Dates: end: 2019
  15. DOXORUBICIN [Concomitant]
     Active Substance: DOXORUBICIN
     Indication: Diffuse large B-cell lymphoma stage III
     Dosage: LAST CHEMOTHERAPY WAS 4 ROUNDS
     Dates: end: 201911
  16. DOXORUBICIN [Concomitant]
     Active Substance: DOXORUBICIN
     Indication: Invasive ductal breast carcinoma
     Dosage: FIRST REGIMEN WAS 2 ROUNDS OF DOSE-ADJUSTED
  17. METHOTREXATE [Suspect]
     Active Substance: METHOTREXATE
     Indication: Diffuse large B-cell lymphoma stage III
     Dosage: FIRST REGIMEN WAS 2 ROUNDS OF DOSE-ADJUSTED
     Route: 037
  18. METHOTREXATE [Suspect]
     Active Substance: METHOTREXATE
     Indication: Invasive ductal breast carcinoma
     Dosage: LAST CHEMOTHERAPY WAS 4 ROUNDS
     Route: 037
     Dates: end: 201911
  19. CYCLOPHOSPHAMIDE [Concomitant]
     Active Substance: CYCLOPHOSPHAMIDE
     Indication: Diffuse large B-cell lymphoma stage III
     Dosage: LAST CHEMOTHERAPY WAS 4 ROUNDS
     Dates: end: 201911
  20. CYCLOPHOSPHAMIDE [Concomitant]
     Active Substance: CYCLOPHOSPHAMIDE
     Indication: Invasive ductal breast carcinoma
     Dosage: FIRST REGIMEN WAS 2 ROUNDS OF DOSE-ADJUSTED

REACTIONS (1)
  - Lumbosacral radiculopathy [Unknown]

NARRATIVE: CASE EVENT DATE: 20220101
